FAERS Safety Report 4331344-X (Version None)
Quarter: 2004Q1

REPORT INFORMATION
  Report Type: 
  Country: None (occurrence: None)
  Receive Date: 20040331
  Receipt Date: 20030421
  Transmission Date: 20041129
  Serious: No
  Sender: FDA-Public Use
  Company Number: 02100-USA-03-0241

PATIENT

DRUGS (1)
  1. PLETAL [Suspect]

REACTIONS (1)
  - THROMBOSIS [None]
